FAERS Safety Report 9953574 (Version 1)
Quarter: 2014Q1

REPORT INFORMATION
  Report Type: Spontaneous
  Country: FR (occurrence: FR)
  Receive Date: 20140304
  Receipt Date: 20140304
  Transmission Date: 20141002
  Serious: Yes (Hospitalization, Other)
  Sender: FDA-Public Use
  Company Number: FR-PFIZER INC-2014056282

PATIENT
  Age: 59 Year
  Sex: Female

DRUGS (6)
  1. SUTENT [Suspect]
     Dosage: 50 MG, UNK
     Route: 048
     Dates: start: 20131031, end: 20131221
  2. SUTENT [Suspect]
     Dosage: 37.5 MG, UNK
     Route: 048
  3. METFORMIN [Concomitant]
  4. VOGALENE [Concomitant]
     Dosage: UNK
  5. NOROXIN [Concomitant]
     Dosage: UNK
  6. PREVISCAN [Concomitant]
     Dosage: 5 OR 10 MG EVERY OTHER DAY

REACTIONS (6)
  - Ejection fraction decreased [Not Recovered/Not Resolved]
  - Cardiac failure [Unknown]
  - Oedema peripheral [Unknown]
  - Dyspnoea [Unknown]
  - Sinus tachycardia [Unknown]
  - Nausea [Unknown]
